FAERS Safety Report 11044157 (Version 1)
Quarter: 2015Q2

REPORT INFORMATION
  Report Type: Spontaneous
  Country: CA (occurrence: CA)
  Receive Date: 20150417
  Receipt Date: 20150417
  Transmission Date: 20150821
  Serious: Yes (Other)
  Sender: FDA-Public Use
  Company Number: CA-TEVA-555476ACC

PATIENT
  Age: 73 Year
  Sex: Male

DRUGS (3)
  1. EFFEXOR XR [Concomitant]
     Active Substance: VENLAFAXINE HYDROCHLORIDE
     Dosage: UNKNOWN FORM STRENGTH
     Route: 065
  2. LORAZEPAM. [Concomitant]
     Active Substance: LORAZEPAM
     Dosage: UNKNOWN FORM STRENGTH
     Route: 065
  3. TEVA-OLANZAPINE OD [Suspect]
     Active Substance: OLANZAPINE
     Indication: MAJOR DEPRESSION
     Dosage: 20 MILLIGRAM DAILY;
     Route: 048

REACTIONS (2)
  - Dysgeusia [Recovered/Resolved]
  - Product substitution issue [Recovered/Resolved]
